FAERS Safety Report 11685219 (Version 1)
Quarter: 2015Q4

REPORT INFORMATION
  Report Type: Report from Study
  Country: US (occurrence: US)
  Receive Date: 20151030
  Receipt Date: 20151030
  Transmission Date: 20160304
  Serious: Yes (Other)
  Sender: FDA-Public Use
  Company Number: US-ABBVIE-15K-163-1487398-00

PATIENT
  Age: 73 Year
  Sex: Male

DRUGS (1)
  1. HUMIRA [Suspect]
     Active Substance: ADALIMUMAB
     Indication: PSORIASIS
     Route: 058
     Dates: start: 2012

REACTIONS (5)
  - Precancerous cells present [Not Recovered/Not Resolved]
  - Device issue [Unknown]
  - Skin cancer [Not Recovered/Not Resolved]
  - Incorrect dose administered [Unknown]
  - Needle issue [Unknown]

NARRATIVE: CASE EVENT DATE: 20151013
